FAERS Safety Report 8392654-2 (Version None)
Quarter: 2012Q2

REPORT INFORMATION
  Report Type: 
  Country: None (occurrence: None)
  Receive Date: 20120529
  Receipt Date: 20120518
  Transmission Date: 20120825
  Serious: Yes (Other)
  Sender: FDA-Public Use
  Company Number: US-ASTRAZENECA-2011SE47794

PATIENT
  Age: 67 Year
  Sex: Female

DRUGS (7)
  1. ATENOLOL [Suspect]
     Route: 048
  2. NEXIUM [Suspect]
     Route: 048
  3. ZOLOFT [Suspect]
     Route: 065
  4. AMITRIPTYLINE HCL [Suspect]
  5. LISINOPRIL [Suspect]
     Route: 048
  6. CRESTOR [Suspect]
     Route: 048
  7. FUROSEMIDE [Suspect]

REACTIONS (8)
  - CEREBRAL HAEMORRHAGE [None]
  - HEAD INJURY [None]
  - CEREBROVASCULAR ACCIDENT [None]
  - ADVERSE EVENT [None]
  - FALL [None]
  - DEMENTIA [None]
  - MEMORY IMPAIRMENT [None]
  - MALAISE [None]
